FAERS Safety Report 4959307-1 (Version None)
Quarter: 2006Q1

REPORT INFORMATION
  Report Type: 
  Country: None (occurrence: None)
  Receive Date: 20060331
  Receipt Date: 20060320
  Transmission Date: 20060701
  Serious: Yes (Other)
  Sender: FDA-Public Use
  Company Number: JP-JNJFOC-20060306827

PATIENT
  Age: 61 Year
  Sex: Female

DRUGS (2)
  1. ITRIZOLE [Suspect]
     Indication: NAIL TINEA
     Route: 048
     Dates: start: 20060226, end: 20060304
  2. UNKNOWN DRUG [Suspect]
     Route: 048
     Dates: start: 20060305, end: 20060306

REACTIONS (3)
  - LYMPHOPENIA [None]
  - PYREXIA [None]
  - RASH [None]
